FAERS Safety Report 5371988-X (Version None)
Quarter: 2007Q2

REPORT INFORMATION
  Report Type: 
  Country: None (occurrence: None)
  Receive Date: 20070627
  Receipt Date: 20070621
  Transmission Date: 20071010
  Serious: Yes (Life-Threatening, Hospitalization, Other)
  Sender: FDA-Public Use
  Company Number: US-ASTRAZENECA-2007UW11316

PATIENT
  Age: 18508 Day
  Sex: Female
  Weight: 79.4 kg

DRUGS (3)
  1. ZOMIG [Suspect]
     Indication: MIGRAINE
     Route: 045
     Dates: start: 20070504
  2. MAXALT [Concomitant]
  3. INDERAL [Concomitant]

REACTIONS (12)
  - APHASIA [None]
  - BRAIN OEDEMA [None]
  - CEREBRAL HAEMORRHAGE [None]
  - CEREBROVASCULAR ARTERIOVENOUS MALFORMATION [None]
  - CULTURE URINE POSITIVE [None]
  - GAZE PALSY [None]
  - HEMIPARESIS [None]
  - INADEQUATE ANALGESIA [None]
  - LOSS OF CONSCIOUSNESS [None]
  - NASAL DISCOMFORT [None]
  - NECK PAIN [None]
  - STREPTOCOCCAL INFECTION [None]
